FAERS Safety Report 24531578 (Version 1)
Quarter: 2024Q4

REPORT INFORMATION
  Report Type: Report from Study
  Country: US (occurrence: US)
  Receive Date: 20241022
  Receipt Date: 20241022
  Transmission Date: 20250114
  Serious: No
  Sender: ROCHE
  Company Number: US-ROCHE-3318682

PATIENT
  Age: 4 Year
  Sex: Male

DRUGS (2)
  1. PULMOZYME [Suspect]
     Active Substance: DORNASE ALFA
     Indication: Respiration abnormal
     Dosage: NEBULIZE THE CONTENTS OF 1 VIAL(S) EVERY DAY, 30 X 2.5 ML AMPULES
     Route: 065
     Dates: start: 20240402
  2. PULMOZYME [Suspect]
     Active Substance: DORNASE ALFA
     Route: 065

REACTIONS (2)
  - Off label use [Unknown]
  - No adverse event [Unknown]
